FAERS Safety Report 24355242 (Version 3)
Quarter: 2024Q4

REPORT INFORMATION
  Report Type: Spontaneous
  Country: JP (occurrence: JP)
  Receive Date: 20240924
  Receipt Date: 20241205
  Transmission Date: 20250114
  Serious: Yes (Other)
  Sender: GENMAB
  Company Number: JP-GENMAB-2024-03405

PATIENT
  Age: 86 Year
  Sex: Female

DRUGS (6)
  1. EPKINLY [Suspect]
     Active Substance: EPCORITAMAB-BYSP
     Indication: Diffuse large B-cell lymphoma refractory
     Dosage: UNK, THE FIRST DOSE
     Route: 058
     Dates: start: 20231222, end: 20231222
  2. EPKINLY [Suspect]
     Active Substance: EPCORITAMAB-BYSP
     Dosage: 0.8 MILLIGRAM, SINGLE
     Route: 058
     Dates: start: 20231229, end: 20231229
  3. EPKINLY [Suspect]
     Active Substance: EPCORITAMAB-BYSP
     Dosage: 48 MILLIGRAM, ADMINISTERED UP TO CYCLE 10
     Route: 058
     Dates: start: 20240105
  4. PREDNISOLONE [Concomitant]
     Active Substance: PREDNISOLONE
     Indication: Prophylaxis
     Dosage: 100 MILLIGRAM, ON DAY 1 (30 MINUTES BEFORE EPKINLY ADMINISTRATION), DAY 2, DAY 3 AND DAY 4 OF ADMINI
     Route: 048
     Dates: start: 20231222, end: 202401
  5. FEXOFENADINE HYDROCHLORIDE [Concomitant]
     Active Substance: FEXOFENADINE HYDROCHLORIDE
     Indication: Prophylaxis
     Dosage: 60 MILLIGRAM, ON DAY 1 OF ADMINISTRATION OF EPKINLY, FROM THE FIRST TO THE FOURTH ADMINISTRATION IN
     Route: 048
     Dates: start: 20231222, end: 202401
  6. CALONAL [Concomitant]
     Active Substance: ACETAMINOPHEN
     Indication: Prophylaxis
     Dosage: 800 MILLIGRAM, FROM THE FIRST TO THE FOURTH ADMINISTRATION IN CYCLE 1, 30 MINUTES BEFORE EPKINLY ADM
     Route: 048
     Dates: start: 20231222, end: 202401

REACTIONS (7)
  - Hypogammaglobulinaemia [Recovered/Resolved]
  - Diffuse large B-cell lymphoma refractory [Unknown]
  - Cytokine release syndrome [Recovered/Resolved]
  - Cytokine release syndrome [Recovered/Resolved]
  - Influenza [Unknown]
  - Neoplasm progression [Unknown]
  - Neutrophil count decreased [Unknown]

NARRATIVE: CASE EVENT DATE: 20240101
